FAERS Safety Report 7873772-1 (Version None)
Quarter: 2011Q4

REPORT INFORMATION
  Report Type: 
  Country: None (occurrence: None)
  Receive Date: 20111030
  Receipt Date: 20110510
  Transmission Date: 20120403
  Serious: No
  Sender: FDA-Public Use
  Company Number: US-AMGEN-USASP2011024109

PATIENT
  Sex: Female

DRUGS (2)
  1. ENBREL [Suspect]
     Dosage: 50 MG, QWK
     Dates: start: 20090601
  2. SIMPONI [Concomitant]
     Indication: REITER'S SYNDROME
     Dosage: UNK
     Dates: start: 20100101, end: 20110101

REACTIONS (4)
  - INJECTION SITE ERYTHEMA [None]
  - INJECTION SITE PRURITUS [None]
  - REITER'S SYNDROME [None]
  - INJECTION SITE SWELLING [None]
